FAERS Safety Report 10469160 (Version 1)
Quarter: 2014Q3

REPORT INFORMATION
  Report Type: Report from Study
  Country: US (occurrence: US)
  Receive Date: 20140923
  Receipt Date: 20140923
  Transmission Date: 20150326
  Serious: Yes (Other)
  Sender: FDA-Public Use
  Company Number: US-009507513-1409USA006603

PATIENT
  Age: 66 Year

DRUGS (24)
  1. ACTIQ [Concomitant]
     Active Substance: FENTANYL CITRATE
  2. SOMA [Concomitant]
     Active Substance: CARISOPRODOL
  3. DIPHENHYDRAMINE HYDROCHLORIDE. [Concomitant]
     Active Substance: DIPHENHYDRAMINE HYDROCHLORIDE
  4. DOCUSATE SODIUM. [Concomitant]
     Active Substance: DOCUSATE SODIUM
  5. PLAVIX [Concomitant]
     Active Substance: CLOPIDOGREL BISULFATE
  6. PROCHLORPERAZINE EDISYLATE. [Concomitant]
     Active Substance: PROCHLORPERAZINE EDISYLATE
  7. VALACYCLOVIR HYDROCHLORIDE. [Concomitant]
     Active Substance: VALACYCLOVIR HYDROCHLORIDE
  8. ZOFRAN [Concomitant]
     Active Substance: ONDANSETRON HYDROCHLORIDE
  9. CLOPIDOGREL BISULFATE. [Concomitant]
     Active Substance: CLOPIDOGREL BISULFATE
  10. DIOVAN [Concomitant]
     Active Substance: VALSARTAN
  11. HYDROMORPHONE [Concomitant]
     Active Substance: HYDROMORPHONE
  12. LANSOPRAZOLE. [Concomitant]
     Active Substance: LANSOPRAZOLE
  13. LIPITOR [Concomitant]
     Active Substance: ATORVASTATIN CALCIUM
  14. TRAMADOL HYDROCHLORIDE. [Concomitant]
     Active Substance: TRAMADOL HYDROCHLORIDE
  15. CALCIUM (UNSPECIFIED) [Concomitant]
     Active Substance: CALCIUM
  16. ONDANSETRON HYDROCHLORIDE. [Concomitant]
     Active Substance: ONDANSETRON HYDROCHLORIDE
  17. HYDROCODONE [Concomitant]
     Active Substance: HYDROCODONE
  18. DECADRON [Suspect]
     Active Substance: DEXAMETHASONE
     Dosage: 40 MG/M2, DAY OF AND AFTER VELCADE
     Route: 048
     Dates: start: 20110702, end: 20110711
  19. VELCADE [Suspect]
     Active Substance: BORTEZOMIB
     Indication: PLASMA CELL MYELOMA
     Dosage: 1.3 MG/M2, ON DAYS 1, 8 ,15, 21
     Route: 042
     Dates: start: 20110702, end: 20110711
  20. APAP [Concomitant]
     Active Substance: ACETAMINOPHEN
  21. LORAZEPAM. [Concomitant]
     Active Substance: LORAZEPAM
  22. VITAMIN D [Concomitant]
     Active Substance: CHOLECALCIFEROL
  23. FENTANYL CITRATE. [Concomitant]
     Active Substance: FENTANYL CITRATE
  24. ATORVASTATIN [Concomitant]
     Active Substance: ATORVASTATIN

REACTIONS (1)
  - Back pain [Unknown]

NARRATIVE: CASE EVENT DATE: 20110706
